FAERS Safety Report 8006899-4 (Version None)
Quarter: 2011Q4

REPORT INFORMATION
  Report Type: 
  Country: None (occurrence: None)
  Receive Date: 20111227
  Receipt Date: 20111223
  Transmission Date: 20120403
  Serious: Yes (Death, Hospitalization)
  Sender: FDA-Public Use
  Company Number: FR-JNJFOC-20111210184

PATIENT
  Sex: Female

DRUGS (7)
  1. RISPERDAL [Suspect]
     Indication: DEMENTIA
     Route: 048
     Dates: start: 20100101
  2. TANAKAN [Concomitant]
     Route: 048
  3. FLUINDIONE [Suspect]
     Indication: ATRIAL FIBRILLATION
     Route: 048
     Dates: end: 20110805
  4. LASIX [Suspect]
     Indication: HYPERTENSION
     Route: 048
  5. ACETAMINOPHEN [Concomitant]
     Route: 048
  6. ATORVASTATIN CALCIUM [Concomitant]
     Route: 048
  7. IRBESARTAN [Suspect]
     Indication: HYPERTENSION
     Route: 048

REACTIONS (3)
  - SUBARACHNOID HAEMORRHAGE [None]
  - FALL [None]
  - CRANIOCEREBRAL INJURY [None]
